FAERS Safety Report 6472375-3 (Version None)
Quarter: 2009Q4

REPORT INFORMATION
  Report Type: 
  Country: None (occurrence: None)
  Receive Date: 20091125
  Receipt Date: 20091110
  Transmission Date: 20100525
  Serious: Yes (Other)
  Sender: FDA-Public Use
  Company Number: 1000010261

PATIENT
  Age: 89 Year
  Sex: Female

DRUGS (1)
  1. ESCITALOPRAM [Suspect]
     Indication: DEPRESSION
     Dosage: 5 MG (5 MG,  1 IN 1 D),ORAL
     Route: 048
     Dates: start: 20090901, end: 20091001

REACTIONS (1)
  - EPILEPSY [None]
